FAERS Safety Report 7303374-7 (Version None)
Quarter: 2011Q1

REPORT INFORMATION
  Report Type: 
  Country: None (occurrence: None)
  Receive Date: 20110221
  Receipt Date: 20110209
  Transmission Date: 20110831
  Serious: Yes (Hospitalization)
  Sender: FDA-Public Use
  Company Number: US-ELI_LILLY_AND_COMPANY-US201102003010

PATIENT
  Age: 54 Year
  Sex: Male

DRUGS (3)
  1. PROZAC [Suspect]
     Dosage: 10 MG, 2/D
  2. PROZAC [Suspect]
     Indication: NERVOUS SYSTEM DISORDER
     Dosage: 10 MG, DAILY (1/D)
  3. PERCOCET [Concomitant]

REACTIONS (9)
  - MALAISE [None]
  - OFF LABEL USE [None]
  - HYPERTENSION [None]
  - GASTRIC MUCOSAL LESION [None]
  - PROSTATOMEGALY [None]
  - HOSPITALISATION [None]
  - ABDOMINAL PAIN UPPER [None]
  - ARTHRITIS [None]
  - FEELING ABNORMAL [None]
